FAERS Safety Report 12867681 (Version 2)
Quarter: 2016Q4

REPORT INFORMATION
  Report Type: Report from Study
  Country: GB (occurrence: GB)
  Receive Date: 20161020
  Receipt Date: 20161031
  Transmission Date: 20170207
  Serious: Yes (Life-Threatening, Other)
  Sender: FDA-Public Use
  Company Number: GB-ALXN-A201605815AA

PATIENT
  Age: 3 Month
  Sex: Female
  Weight: 6 kg

DRUGS (10)
  1. SEBELIPASE ALFA [Suspect]
     Active Substance: SEBELIPASE ALFA
     Indication: LYSOSOMAL ACID LIPASE DEFICIENCY
     Dosage: 1 MG/KG, QW
     Route: 042
     Dates: start: 20160519, end: 20160608
  2. ALFA-TOCOPHEROL ACETATE [Concomitant]
     Indication: VITAMIN E DECREASED
     Dosage: 50 MG, QD
     Route: 048
     Dates: start: 20160527
  3. SEBELIPASE ALFA [Suspect]
     Active Substance: SEBELIPASE ALFA
     Dosage: 17.1 MG, UNK
     Route: 042
     Dates: start: 20160803, end: 20160803
  4. SEBELIPASE ALFA [Suspect]
     Active Substance: SEBELIPASE ALFA
     Dosage: 5.0 MG, UNK
     Route: 042
     Dates: start: 20160720, end: 20160721
  5. ALFACALCIDOL [Concomitant]
     Active Substance: ALFACALCIDOL
     Indication: BLOOD CALCIUM DECREASED
     Dosage: 100 MG, QD
     Route: 048
     Dates: start: 20160527
  6. SEBELIPASE ALFA [Suspect]
     Active Substance: SEBELIPASE ALFA
     Dosage: 3 MG/KG, QW
     Route: 042
     Dates: start: 20160613, end: 20160629
  7. SEBELIPASE ALFA [Suspect]
     Active Substance: SEBELIPASE ALFA
     Dosage: 1.85 MG, UNK
     Route: 042
     Dates: start: 20160714, end: 20160715
  8. OMEPRAZOLE. [Concomitant]
     Active Substance: OMEPRAZOLE
     Indication: GASTROOESOPHAGEAL REFLUX DISEASE
     Dosage: 5 MG, PRN
     Route: 048
     Dates: start: 20160603
  9. SEBELIPASE ALFA [Suspect]
     Active Substance: SEBELIPASE ALFA
     Dosage: 10.64 MG, UNK
     Route: 042
     Dates: start: 20160727, end: 20160728
  10. SYTRON [Concomitant]
     Indication: SERUM FERRITIN DECREASED
     Dosage: 2.5 ML, BID
     Route: 048
     Dates: start: 20160528

REACTIONS (4)
  - Tachycardia [Recovered/Resolved]
  - Tachypnoea [Recovered/Resolved]
  - Angioedema [Recovered/Resolved]
  - Irritability [Recovered/Resolved]

NARRATIVE: CASE EVENT DATE: 20160803
